FAERS Safety Report 19218954 (Version 1)
Quarter: 2021Q2

REPORT INFORMATION
  Report Type: Spontaneous
  Country: US (occurrence: US)
  Receive Date: 20210505
  Receipt Date: 20210505
  Transmission Date: 20210717
  Serious: No
  Sender: FDA-Public Use
  Company Number: US-ROCHE-2601056

PATIENT
  Sex: Female

DRUGS (1)
  1. ESBRIET [Suspect]
     Active Substance: PIRFENIDONE
     Indication: IDIOPATHIC PULMONARY FIBROSIS
     Dosage: ONE CAPSULE THREE TIMES A DAY AFTER ONE WEEK 2 CAPSULE THREE TIMES A DAY AFTER ONE WEEK 3 CAPSULE TH
     Route: 048

REACTIONS (1)
  - Somnolence [Unknown]
